FAERS Safety Report 13073380 (Version 1)
Quarter: 2016Q4

REPORT INFORMATION
  Report Type: Report from Study
  Country: IT (occurrence: IT)
  Receive Date: 20161229
  Receipt Date: 20161229
  Transmission Date: 20170207
  Serious: Yes (Other)
  Sender: FDA-Public Use
  Company Number: IT-BAYER-2016-243435

PATIENT

DRUGS (1)
  1. CARDIO ASPIRIN [LOW DOSE ASPIRIN] [Suspect]
     Active Substance: ASPIRIN
     Dosage: UNK
     Route: 015

REACTIONS (4)
  - Foetal growth restriction [None]
  - Foetal exposure during pregnancy [None]
  - Low birth weight baby [None]
  - Maternal drugs affecting foetus [None]
